FAERS Safety Report 6401019-1 (Version None)
Quarter: 2009Q4

REPORT INFORMATION
  Report Type: 
  Country: None (occurrence: None)
  Receive Date: 20091015
  Receipt Date: 20091006
  Transmission Date: 20100525
  Serious: Yes (Other)
  Sender: FDA-Public Use
  Company Number: GB-RANBAXY-2009RR-28516

PATIENT
  Age: 31 Year
  Sex: Female

DRUGS (12)
  1. METOCLOPRAMIDE [Suspect]
     Indication: VOMITING
     Dosage: 10 MG, PRN
     Route: 065
  2. METOCLOPRAMIDE [Suspect]
     Indication: NAUSEA
  3. CYCLIZINE [Suspect]
     Indication: VOMITING
     Dosage: 50 MG, TID
     Route: 042
  4. CYCLIZINE [Suspect]
     Indication: NAUSEA
  5. ONDANSETRON [Suspect]
     Indication: VOMITING
     Dosage: 4 MG, UNK
     Route: 048
  6. ONDANSETRON [Suspect]
     Indication: NAUSEA
     Dosage: UNK
     Route: 042
  7. PREDNISOLONE [Suspect]
     Indication: VOMITING
     Dosage: 40 MG, UNK
     Route: 065
  8. PREDNISOLONE [Suspect]
     Indication: NAUSEA
  9. RANITIDINE [Suspect]
     Indication: VOMITING
     Dosage: 50 MG, TID
     Route: 042
  10. RANITIDINE [Suspect]
     Indication: NAUSEA
  11. THIAMINE HCL [Suspect]
     Indication: VOMITING
     Dosage: 25 MG, TID
     Route: 048
  12. THIAMINE HCL [Suspect]
     Indication: NAUSEA

REACTIONS (2)
  - DRUG EXPOSURE DURING PREGNANCY [None]
  - DRUG INEFFECTIVE [None]
